FAERS Safety Report 5830670-2 (Version None)
Quarter: 2008Q3

REPORT INFORMATION
  Report Type: 
  Country: None (occurrence: None)
  Receive Date: 20080801
  Receipt Date: 20070928
  Transmission Date: 20090109
  Serious: Yes (Hospitalization)
  Sender: FDA-Public Use
  Company Number: US-BRISTOL-MYERS SQUIBB COMPANY-13923867

PATIENT
  Age: 77 Year
  Sex: Female
  Weight: 58 kg

DRUGS (5)
  1. COUMADIN [Suspect]
     Indication: ARRHYTHMIA
     Dosage: 5MG WAS TAKEN AS STARTING DOSE AND REDUCED TO 1MG AND CURRENTLY SHE TAKING 2MG.
     Route: 048
  2. LISINOPRIL [Suspect]
     Indication: ARRHYTHMIA
     Route: 048
     Dates: start: 20070901
  3. METOPROLOL TARTRATE [Suspect]
     Indication: ARRHYTHMIA
     Route: 048
     Dates: start: 20070901, end: 20070901
  4. ALPHAGAN [Concomitant]
  5. LUMIGAN [Concomitant]

REACTIONS (2)
  - NIGHTMARE [None]
  - OVERDOSE [None]
